FAERS Safety Report 13698621 (Version 3)
Quarter: 2017Q3

REPORT INFORMATION
  Report Type: Report from Study
  Country: IE (occurrence: IE)
  Receive Date: 20170628
  Receipt Date: 20170710
  Transmission Date: 20171127
  Serious: Yes (Hospitalization)
  Sender: FDA-Public Use
  Company Number: IE-PFIZER INC-2017274959

PATIENT
  Age: 69 Year
  Sex: Female
  Weight: 58 kg

DRUGS (6)
  1. LYRICA [Concomitant]
     Active Substance: PREGABALIN
     Indication: PAIN
     Dosage: 50 MG, UNK
  2. DESUNIN [Concomitant]
     Active Substance: CHOLECALCIFEROL
  3. INNOHEP [Concomitant]
     Active Substance: TINZAPARIN SODIUM
  4. PALBOCICLIB [Suspect]
     Active Substance: PALBOCICLIB
     Indication: BREAST CANCER METASTATIC
     Dosage: 100 MG, UNK
     Route: 048
     Dates: end: 20170615
  5. MST /00021210/ [Concomitant]
     Indication: PAIN
     Dosage: 30 MG, UNK
  6. SEVREDOL [Concomitant]
     Active Substance: MORPHINE
     Indication: PAIN
     Dosage: UNK UNK, AS NEEDED

REACTIONS (17)
  - Loss of consciousness [Recovering/Resolving]
  - Pneumocephalus [Recovering/Resolving]
  - Myalgia [Recovering/Resolving]
  - Fall [Recovering/Resolving]
  - Cerebellar haemorrhage [Recovering/Resolving]
  - Vomiting [Recovering/Resolving]
  - Subdural haematoma [Recovering/Resolving]
  - Mastoid disorder [Recovering/Resolving]
  - Headache [Recovering/Resolving]
  - Nausea [Recovered/Resolved]
  - Central nervous system lesion [Recovering/Resolving]
  - Head injury [Recovering/Resolving]
  - Skull fracture [Recovering/Resolving]
  - Brain contusion [Recovering/Resolving]
  - Traumatic intracranial haemorrhage [Recovering/Resolving]
  - Intraventricular haemorrhage [Recovering/Resolving]
  - Sinus disorder [Recovering/Resolving]

NARRATIVE: CASE EVENT DATE: 20170618
